FAERS Safety Report 8892239 (Version 2)
Quarter: 2012Q4

REPORT INFORMATION
  Report Type: 
  Country: GB (occurrence: GB)
  Receive Date: 20121107
  Receipt Date: 20121130
  Transmission Date: 20130627
  Serious: Yes (Other)
  Sender: FDA-Public Use
  Company Number: GB-WATSON-2012-18503

PATIENT
  Age: 50 Year
  Sex: Female

DRUGS (2)
  1. DOXAZOSIN MESYLATE [Suspect]
     Indication: BLOOD PRESSURE
     Dosage: UNK
     Route: 065
  2. SODIUM VALPROATE [Suspect]
     Indication: EPILEPSY
     Dosage: 1500mg, unk
     Route: 048

REACTIONS (2)
  - Epilepsy [Unknown]
  - Drug interaction [Unknown]
